FAERS Safety Report 9393964 (Version 1)
Quarter: 2013Q3

REPORT INFORMATION
  Report Type: Spontaneous
  Country: NL (occurrence: NL)
  Receive Date: 20130710
  Receipt Date: 20130710
  Transmission Date: 20140515
  Serious: Yes (Hospitalization)
  Sender: FDA-Public Use
  Company Number: PHHY2013NL072132

PATIENT
  Age: 61 Year
  Sex: Male
  Weight: 78 kg

DRUGS (2)
  1. METOPROLOL SANDOZ [Suspect]
     Dosage: 50 MG, QD
     Dates: start: 201304, end: 201305
  2. ASCAL BRISPER [Concomitant]
     Dosage: 38 MG, QD
     Dates: start: 200001

REACTIONS (3)
  - Eczema [Recovered/Resolved]
  - Gastrointestinal haemorrhage [Recovered/Resolved]
  - Therapeutic response unexpected with drug substitution [Recovered/Resolved]
